FAERS Safety Report 6038851-2 (Version None)
Quarter: 2009Q1

REPORT INFORMATION
  Report Type: 
  Country: None (occurrence: None)
  Receive Date: 20090115
  Receipt Date: 20081231
  Transmission Date: 20090719
  Serious: Yes (Hospitalization)
  Sender: FDA-Public Use
  Company Number: SA-GENENTECH-274971

PATIENT
  Age: 47 Year
  Sex: Male

DRUGS (6)
  1. MABTHERA [Suspect]
     Indication: RHEUMATOID ARTHRITIS
     Dosage: 1 G, Q6M
     Route: 050
     Dates: start: 20080301
  2. SULFASALAZINE [Concomitant]
     Indication: DRUG USE FOR UNKNOWN INDICATION
     Dosage: UNK
  3. PREDNISOLONE [Concomitant]
     Indication: DRUG USE FOR UNKNOWN INDICATION
     Dosage: UNK
  4. ONE ALPHA [Concomitant]
     Indication: OSTEOPOROSIS PROPHYLAXIS
     Dosage: 0.25 A?G, QD
     Route: 048
  5. FOSAMAX [Concomitant]
     Indication: DRUG USE FOR UNKNOWN INDICATION
     Dosage: UNK
  6. CALCIUM [Concomitant]
     Indication: DRUG USE FOR UNKNOWN INDICATION
     Dosage: UNK

REACTIONS (1)
  - TUBERCULOSIS [None]
